FAERS Safety Report 16235867 (Version 2)
Quarter: 2019Q2

REPORT INFORMATION
  Report Type: Report from Study
  Country: None (occurrence: RO)
  Receive Date: 20190424
  Receipt Date: 20190509
  Transmission Date: 20190711
  Serious: Yes (Death, Hospitalization, Other)
  Sender: FDA-Public Use
  Company Number: RO-ABBVIE-19S-135-2752894-00

PATIENT
  Age: 46 Year
  Sex: Male

DRUGS (1)
  1. DUODOPA [Suspect]
     Active Substance: CARBIDOPA\LEVODOPA
     Indication: PARKINSON^S DISEASE
     Dosage: DM=5.00;DC=2.20;ED=1.00;NRED=2;DMN=0.00;DCN=0.00;EDN=0.00;NREDN=0
     Route: 050
     Dates: start: 20160212, end: 20190504

REACTIONS (7)
  - General physical health deterioration [Recovering/Resolving]
  - Cardio-respiratory arrest [Fatal]
  - Hypotension [Recovering/Resolving]
  - Blood glucose decreased [Recovering/Resolving]
  - Patient uncooperative [Unknown]
  - Cold sweat [Recovering/Resolving]
  - Staring [Recovering/Resolving]

NARRATIVE: CASE EVENT DATE: 20190416
